FAERS Safety Report 9135002 (Version 2)
Quarter: 2013Q3

REPORT INFORMATION
  Report Type: Spontaneous
  Country: FR (occurrence: FR)
  Receive Date: 20130304
  Receipt Date: 20130711
  Transmission Date: 20140515
  Serious: Yes (Other)
  Sender: FDA-Public Use
  Company Number: FR-PFIZER INC-2013070371

PATIENT
  Age: 35 Year
  Sex: Male

DRUGS (2)
  1. SOLU-MEDROL [Suspect]
     Dosage: 1 G, UNK
     Route: 040
     Dates: start: 20080908, end: 20080912
  2. RISPERDAL [Concomitant]
     Indication: BIPOLAR DISORDER
     Dosage: 2 MG, UNK

REACTIONS (9)
  - Paraplegia [Unknown]
  - Spinal fracture [Unknown]
  - Dislocation of vertebra [Unknown]
  - Delirium [Unknown]
  - Panic attack [Unknown]
  - Fall [Unknown]
  - Decreased appetite [Unknown]
  - Insomnia [Unknown]
  - Anxiety [Unknown]
